FAERS Safety Report 11805050 (Version 3)
Quarter: 2016Q1

REPORT INFORMATION
  Report Type: Report from Study
  Country: US (occurrence: US)
  Receive Date: 20151205
  Receipt Date: 20160331
  Transmission Date: 20160525
  Serious: Yes (Hospitalization, Other)
  Sender: FDA-Public Use
  Company Number: PHEH2015US024772

PATIENT
  Age: 55 Year
  Sex: Female

DRUGS (4)
  1. COUMADINE [Concomitant]
     Active Substance: WARFARIN SODIUM
     Indication: PRODUCT USED FOR UNKNOWN INDICATION
     Route: 065
  2. COSENTYX [Suspect]
     Active Substance: SECUKINUMAB
     Indication: PSORIASIS
     Dosage: 300 MG, QMO
     Route: 058
     Dates: start: 201509, end: 201511
  3. ATORVASTATIN [Concomitant]
     Active Substance: ATORVASTATIN
     Indication: PRODUCT USED FOR UNKNOWN INDICATION
     Route: 065
  4. ZOLOFT [Concomitant]
     Active Substance: SERTRALINE HYDROCHLORIDE
     Indication: PRODUCT USED FOR UNKNOWN INDICATION
     Route: 065

REACTIONS (10)
  - Diarrhoea [Unknown]
  - Antinuclear antibody increased [Recovered/Resolved]
  - Joint swelling [Unknown]
  - Muscle spasms [Unknown]
  - Diverticulum [Unknown]
  - Malaise [Recovered/Resolved]
  - Acne [Unknown]
  - Lupus-like syndrome [Recovered/Resolved]
  - Red blood cell sedimentation rate increased [Recovered/Resolved]
  - Arthralgia [Recovered/Resolved]

NARRATIVE: CASE EVENT DATE: 20160120
